FAERS Safety Report 9866820 (Version 2)
Quarter: 2014Q1

REPORT INFORMATION
  Report Type: Spontaneous
  Country: BR (occurrence: BR)
  Receive Date: 20140204
  Receipt Date: 20140204
  Transmission Date: 20141002
  Serious: Yes (Other)
  Sender: FDA-Public Use
  Company Number: BR-ROCHE-615187

PATIENT
  Age: 79 Year
  Sex: Female
  Weight: 45 kg

DRUGS (7)
  1. RIVOTRIL [Suspect]
     Indication: CEREBRAL DISORDER
     Route: 048
  2. RIVOTRIL [Suspect]
     Indication: MEMORY IMPAIRMENT
     Dosage: TAKEN AT 10 P.M.
     Route: 048
     Dates: start: 1972, end: 201312
  3. RIVOTRIL [Suspect]
     Indication: HEADACHE
     Dosage: TAKEN AT 10 P.M.
     Route: 048
  4. RIVOTRIL [Suspect]
     Indication: INSOMNIA
     Dosage: 1 TABLET AT 10 P.M. AND 1 TABLET AT 4 A.M
     Route: 048
  5. RIVOTRIL [Suspect]
     Indication: AMNESIA
  6. FORTEO [Concomitant]
     Indication: OSTEOPOROSIS
     Route: 065
  7. CALCITONINE [Concomitant]
     Indication: OSTEOPOROSIS
     Dosage: FORM: INJECTABLE
     Route: 065

REACTIONS (18)
  - Physical disability [Not Recovered/Not Resolved]
  - Hypertension [Not Recovered/Not Resolved]
  - Dizziness [Not Recovered/Not Resolved]
  - Tremor [Not Recovered/Not Resolved]
  - Drug dose omission [Unknown]
  - Malaise [Not Recovered/Not Resolved]
  - Spinal fracture [Not Recovered/Not Resolved]
  - Fall [Unknown]
  - Rib fracture [Recovered/Resolved]
  - Arrhythmia [Not Recovered/Not Resolved]
  - Drug ineffective [Unknown]
  - Medication error [Unknown]
  - Pain [Not Recovered/Not Resolved]
  - Malaise [Not Recovered/Not Resolved]
  - Confusional state [Not Recovered/Not Resolved]
  - Insomnia [Not Recovered/Not Resolved]
  - Labyrinthitis [Not Recovered/Not Resolved]
  - Tinnitus [Not Recovered/Not Resolved]
